FAERS Safety Report 18339451 (Version 2)
Quarter: 2020Q4

REPORT INFORMATION
  Report Type: Spontaneous
  Country: US (occurrence: US)
  Receive Date: 20201002
  Receipt Date: 20201009
  Transmission Date: 20210113
  Serious: Yes (Hospitalization, Other)
  Sender: FDA-Public Use
  Company Number: US-ASTRAZENECA-2020SF25171

PATIENT
  Age: 17084 Day
  Sex: Male
  Weight: 123.4 kg

DRUGS (44)
  1. RANITIDINE. [Concomitant]
     Active Substance: RANITIDINE
  2. HYDROMORPHONE [Concomitant]
     Active Substance: HYDROMORPHONE
     Dates: start: 20160202
  3. LISINOPRIL. [Concomitant]
     Active Substance: LISINOPRIL
     Dates: start: 20160211
  4. LABETALOL [Concomitant]
     Active Substance: LABETALOL\LABETALOL HYDROCHLORIDE
  5. PROTONIX [Concomitant]
     Active Substance: PANTOPRAZOLE SODIUM
     Dates: start: 2012
  6. CITALOPRAM [Concomitant]
     Active Substance: CITALOPRAM HYDROBROMIDE
  7. FARXIGA [Suspect]
     Active Substance: DAPAGLIFLOZIN PROPANEDIOL
     Indication: TYPE 2 DIABETES MELLITUS
     Route: 048
     Dates: start: 20160223
  8. PROMETHAZINE [Concomitant]
     Active Substance: PROMETHAZINE HYDROCHLORIDE
  9. HEPARIN [Concomitant]
     Active Substance: HEPARIN SODIUM
  10. PRENATAL [Concomitant]
     Active Substance: VITAMINS
  11. SODIUM CHLORIDE. [Concomitant]
     Active Substance: SODIUM CHLORIDE
  12. VANCOMYCIN [Concomitant]
     Active Substance: VANCOMYCIN
  13. COLACE [Concomitant]
     Active Substance: DOCUSATE SODIUM
  14. PROPOFOL. [Concomitant]
     Active Substance: PROPOFOL
     Dates: start: 20160202
  15. KETAMINE [Concomitant]
     Active Substance: KETAMINE
     Dates: start: 20160202
  16. ACETAMINOPHEN. [Concomitant]
     Active Substance: ACETAMINOPHEN
  17. DEMEROL [Concomitant]
     Active Substance: MEPERIDINE HYDROCHLORIDE
  18. MICONAZOLE. [Concomitant]
     Active Substance: MICONAZOLE
     Dates: start: 20160310
  19. FARXIGA [Suspect]
     Active Substance: DAPAGLIFLOZIN PROPANEDIOL
     Indication: WEIGHT DECREASED
     Route: 048
     Dates: start: 20160203
  20. BACITRACIN. [Concomitant]
     Active Substance: BACITRACIN
  21. HYDRALAZINE [Concomitant]
     Active Substance: HYDRALAZINE HYDROCHLORIDE
  22. SENOKOT [Concomitant]
     Active Substance: SENNOSIDES
  23. PHENERGAN [Concomitant]
     Active Substance: PROMETHAZINE HYDROCHLORIDE
  24. FARXIGA [Suspect]
     Active Substance: DAPAGLIFLOZIN PROPANEDIOL
     Indication: TYPE 2 DIABETES MELLITUS
     Route: 048
     Dates: start: 20160203
  25. FARXIGA [Suspect]
     Active Substance: DAPAGLIFLOZIN PROPANEDIOL
     Indication: BLOOD PRESSURE ABNORMAL
     Route: 048
     Dates: start: 20160223
  26. ZOSYN [Concomitant]
     Active Substance: PIPERACILLIN SODIUM\TAZOBACTAM SODIUM
  27. ZOFRAN [Concomitant]
     Active Substance: ONDANSETRON HYDROCHLORIDE
     Dates: start: 20160210
  28. SYRINGE [Concomitant]
     Active Substance: DEVICE
  29. SUCCINYLCHOLINE [Concomitant]
     Active Substance: SUCCINYLCHOLINE
     Dates: start: 20160202
  30. ZEMURON [Concomitant]
     Active Substance: ROCURONIUM BROMIDE
  31. TRANDATE [Concomitant]
     Active Substance: LABETALOL HYDROCHLORIDE
  32. IBUPROFEN. [Concomitant]
     Active Substance: IBUPROFEN
     Dates: start: 20160310
  33. NOVOLIN NOS [Concomitant]
     Active Substance: INSULIN HUMAN
  34. FARXIGA [Suspect]
     Active Substance: DAPAGLIFLOZIN PROPANEDIOL
     Indication: BLOOD PRESSURE ABNORMAL
     Route: 048
     Dates: start: 20160203
  35. FARXIGA [Suspect]
     Active Substance: DAPAGLIFLOZIN PROPANEDIOL
     Indication: WEIGHT DECREASED
     Route: 048
     Dates: start: 20160223
  36. CLINDAMYCIN. [Concomitant]
     Active Substance: CLINDAMYCIN
  37. HUMULIN NOS [Concomitant]
     Active Substance: INSULIN HUMAN
  38. SILVADENE [Concomitant]
     Active Substance: SILVER SULFADIAZINE
  39. LEVAQUIN [Concomitant]
     Active Substance: LEVOFLOXACIN
  40. FENTANYL. [Concomitant]
     Active Substance: FENTANYL
  41. TRILIPIX [Concomitant]
     Active Substance: FENOFIBRIC ACID
  42. MIDAZOLAM. [Concomitant]
     Active Substance: MIDAZOLAM
  43. LACTATED [Concomitant]
     Dates: start: 20160202
  44. METRONIDAZOLE. [Concomitant]
     Active Substance: METRONIDAZOLE
     Dates: start: 20160205

REACTIONS (6)
  - Fournier^s gangrene [Unknown]
  - Anal incontinence [Unknown]
  - Nerve injury [Unknown]
  - Necrotising fasciitis [Unknown]
  - Scar [Unknown]
  - Pain [Unknown]

NARRATIVE: CASE EVENT DATE: 20160202
